FAERS Safety Report 4980001-5 (Version None)
Quarter: 2006Q2

REPORT INFORMATION
  Report Type: 
  Country: None (occurrence: None)
  Receive Date: 20060421
  Receipt Date: 20050302
  Transmission Date: 20061013
  Serious: Yes (Hospitalization, Disabling)
  Sender: FDA-Public Use
  Company Number: US-MERCK-0503USA00647

PATIENT
  Age: 54 Year
  Sex: Male
  Weight: 91 kg

DRUGS (2)
  1. VIOXX [Suspect]
     Indication: ARTHRITIS
     Route: 048
     Dates: start: 20010901, end: 20030101
  2. VIOXX [Suspect]
     Indication: ARTHRALGIA
     Route: 048
     Dates: start: 20010901, end: 20030101

REACTIONS (8)
  - ANXIETY [None]
  - CORONARY ARTERY OCCLUSION [None]
  - DEPRESSION [None]
  - FALL [None]
  - MYOCARDIAL INFARCTION [None]
  - OSTEOMYELITIS [None]
  - PNEUMONIA [None]
  - SPINAL COMPRESSION FRACTURE [None]
